FAERS Safety Report 9364606 (Version 1)
Quarter: 2013Q2

REPORT INFORMATION
  Report Type: Spontaneous
  Country: US (occurrence: US)
  Receive Date: 20130624
  Receipt Date: 20130624
  Transmission Date: 20140414
  Serious: No
  Sender: FDA-Public Use
  Company Number: US-B.I. PHARMACEUTICALS,INC./RIDGEFIELD-2013-BI-17450BP

PATIENT
  Age: 82 Year
  Sex: Female

DRUGS (11)
  1. SPIRIVA [Suspect]
     Indication: CHRONIC OBSTRUCTIVE PULMONARY DISEASE
     Dosage: 18 MCG
     Route: 055
     Dates: start: 201305
  2. NIFEDIPINE [Concomitant]
     Dosage: 90 MG
     Route: 048
  3. HYDROCHLOROTHIAZIDE [Concomitant]
     Dosage: 12.5 MG
     Route: 048
  4. TORSEMIDE [Concomitant]
     Dosage: 20 MG
     Route: 048
  5. POTASSIUM [Concomitant]
     Dosage: 20 MEQ
     Route: 048
  6. VITAMIN B12 [Concomitant]
     Dosage: 2000 MG
     Route: 048
  7. MAGNESIUM [Concomitant]
     Dosage: 800 MG
     Route: 048
  8. BENAZEPRIL [Concomitant]
     Dosage: 20 MG
     Route: 048
  9. ATENOLOL [Concomitant]
     Dosage: 25 MG
     Route: 048
  10. CATRATE WITH D [Concomitant]
     Route: 048
  11. FOLIC ACID [Concomitant]
     Dosage: 800 MG
     Route: 048

REACTIONS (10)
  - Alopecia [Not Recovered/Not Resolved]
  - Vision blurred [Recovered/Resolved]
  - Urinary tract infection [Recovered/Resolved]
  - Dry mouth [Not Recovered/Not Resolved]
  - Nasal dryness [Not Recovered/Not Resolved]
  - Pharyngitis [Not Recovered/Not Resolved]
  - Rash [Recovered/Resolved]
  - Pruritus [Recovered/Resolved]
  - Oropharyngeal pain [Not Recovered/Not Resolved]
  - Aphonia [Not Recovered/Not Resolved]
